FAERS Safety Report 7374372-2 (Version None)
Quarter: 2011Q1

REPORT INFORMATION
  Report Type: 
  Country: None (occurrence: None)
  Receive Date: 20110325
  Receipt Date: 20110322
  Transmission Date: 20110831
  Serious: Yes (Other)
  Sender: FDA-Public Use
  Company Number: RO-PFIZER INC-2011062658

PATIENT
  Age: 65 Year
  Sex: Male

DRUGS (3)
  1. ALPRAZOLAM [Suspect]
  2. TRIMETAZIDINE [Suspect]
     Indication: DYSPNOEA
     Dosage: 70 MG, 1X/DAY
  3. PROPRANOLOL [Concomitant]
     Indication: TREMOR
     Dosage: 40 MG, 3X/DAY

REACTIONS (2)
  - PARKINSON'S DISEASE [None]
  - EXTRASYSTOLES [None]
